FAERS Safety Report 9704942 (Version 1)
Quarter: 2013Q4

REPORT INFORMATION
  Report Type: Spontaneous
  Country: HN (occurrence: HN)
  Receive Date: 20131122
  Receipt Date: 20131122
  Transmission Date: 20140711
  Serious: Yes (Death, Hospitalization)
  Sender: FDA-Public Use
  Company Number: PHHY2013HN133750

PATIENT
  Age: 61 Year
  Sex: Female

DRUGS (2)
  1. VOLTAREN [Suspect]
     Indication: ARTHRITIS
     Dosage: UNK UKN, UNK
     Route: 030
  2. VOLTAREN [Suspect]
     Dosage: UNK UKN, UNK
     Route: 048

REACTIONS (4)
  - Death [Fatal]
  - Hypovolaemic shock [Unknown]
  - Gastritis erosive [Unknown]
  - Hair disorder [Unknown]
